FAERS Safety Report 15117592 (Version 2)
Quarter: 2018Q4

REPORT INFORMATION
  Report Type: Spontaneous
  Country: US (occurrence: US)
  Receive Date: 20180706
  Receipt Date: 20181004
  Transmission Date: 20190204
  Serious: No
  Sender: FDA-Public Use
  Company Number: PHEH2018US027854

PATIENT
  Sex: Female

DRUGS (1)
  1. KISQALI [Suspect]
     Active Substance: RIBOCICLIB
     Indication: PRODUCT USED FOR UNKNOWN INDICATION
     Dosage: UNK UNK, QD
     Route: 048

REACTIONS (8)
  - Malaise [Recovering/Resolving]
  - Fatigue [Unknown]
  - Dehydration [Recovering/Resolving]
  - Limb discomfort [Unknown]
  - Diarrhoea [Recovering/Resolving]
  - Feeling abnormal [Unknown]
  - Blood pressure decreased [Recovering/Resolving]
  - Vomiting [Recovering/Resolving]
